FAERS Safety Report 8161928-2 (Version None)
Quarter: 2012Q1

REPORT INFORMATION
  Report Type: 
  Country: None (occurrence: None)
  Receive Date: 20120224
  Receipt Date: 20120213
  Transmission Date: 20120608
  Serious: Yes (Death, Life-Threatening, Other)
  Sender: FDA-Public Use
  Company Number: US-ELI_LILLY_AND_COMPANY-US201202004180

PATIENT
  Age: 52 Year
  Sex: Female

DRUGS (10)
  1. SERTRALINE HYDROCHLORIDE [Concomitant]
  2. OLANZAPINE [Suspect]
  3. ZOLPIDEM [Concomitant]
  4. MORPHINE [Concomitant]
  5. CLONAZEPAM [Concomitant]
  6. FLUOXETINE HYDROCHLORIDE [Suspect]
  7. TRAZODONE HCL [Concomitant]
  8. TEMAZEPAM [Concomitant]
  9. LORAZEPAM [Concomitant]
  10. OXCARBAZEPINE [Concomitant]

REACTIONS (2)
  - CARDIO-RESPIRATORY ARREST [None]
  - COMPLETED SUICIDE [None]
